FAERS Safety Report 18117611 (Version 3)
Quarter: 2021Q1

REPORT INFORMATION
  Report Type: Report from Study
  Country: CA (occurrence: CA)
  Receive Date: 20200806
  Receipt Date: 20210223
  Transmission Date: 20210419
  Serious: Yes (Life-Threatening, Hospitalization, Other)
  Sender: FDA-Public Use
  Company Number: PHHY2019CA141147

PATIENT
  Age: 35 Year
  Sex: Female

DRUGS (3)
  1. ILARIS [Suspect]
     Active Substance: CANAKINUMAB
     Dosage: UNK
     Route: 065
     Dates: start: 20210127
  2. ILARIS [Suspect]
     Active Substance: CANAKINUMAB
     Indication: MUCKLE-WELLS SYNDROME
     Dosage: 300 MG, Q4W
     Route: 058
     Dates: start: 20120514
  3. ILARIS [Suspect]
     Active Substance: CANAKINUMAB
     Dosage: 300 MG, Q4W
     Route: 058
     Dates: start: 2019

REACTIONS (10)
  - Paralysis [Unknown]
  - Coma [Recovered/Resolved]
  - Muckle-Wells syndrome [Unknown]
  - Condition aggravated [Unknown]
  - Cardiac arrest [Unknown]
  - Sepsis [Unknown]
  - Deafness [Unknown]
  - Hypoacusis [Unknown]
  - Illness [Unknown]
  - Meningitis [Unknown]

NARRATIVE: CASE EVENT DATE: 20190614
